FAERS Safety Report 15252297 (Version 1)
Quarter: 2018Q3

REPORT INFORMATION
  Report Type: Spontaneous
  Country: US (occurrence: US)
  Receive Date: 20180717
  Receipt Date: 20180717
  Transmission Date: 20181010
  Serious: Yes (Disabling)
  Sender: FDA-Public Use
  Company Number: None

PATIENT
  Age: 24 Year
  Sex: Female
  Weight: 51.75 kg

DRUGS (5)
  1. METHYLPHENIDATE HCI ER [Concomitant]
     Active Substance: METHYLPHENIDATE HYDROCHLORIDE
  2. FEXOFENADINE [Concomitant]
     Active Substance: FEXOFENADINE\FEXOFENADINE HYDROCHLORIDE
  3. NEXPLANON [Concomitant]
     Active Substance: ETONOGESTREL
  4. VENLAFAXINE ER 75 MG CAPSULE [Suspect]
     Active Substance: VENLAFAXINE HYDROCHLORIDE
     Indication: ANXIETY
     Dosage: ?          QUANTITY:3 CAPSULE(S);?
     Route: 048
     Dates: start: 20180701, end: 20180715
  5. VENLAFAXINE ER 75 MG CAPSULE [Suspect]
     Active Substance: VENLAFAXINE HYDROCHLORIDE
     Indication: DEPRESSION
     Dosage: ?          QUANTITY:3 CAPSULE(S);?
     Route: 048
     Dates: start: 20180701, end: 20180715

REACTIONS (14)
  - Tremor [None]
  - Muscle disorder [None]
  - Product quality issue [None]
  - Dyspnoea [None]
  - Product substitution issue [None]
  - Insomnia [None]
  - Panic reaction [None]
  - Disturbance in attention [None]
  - Psychiatric symptom [None]
  - Anxiety [None]
  - Crying [None]
  - Confusional state [None]
  - Throat tightness [None]
  - Dysphemia [None]

NARRATIVE: CASE EVENT DATE: 20180701
